FAERS Safety Report 6722380-4 (Version None)
Quarter: 2010Q2

REPORT INFORMATION
  Report Type: 
  Country: None (occurrence: None)
  Receive Date: 20100506
  Receipt Date: 20080104
  Transmission Date: 20101027
  Serious: No
  Sender: FDA-Public Use
  Company Number: 2008-00005

PATIENT
  Age: 34 Year
  Sex: Female
  Weight: 69.4003 kg

DRUGS (3)
  1. ZICAM COLD REMEDY NASAL GEL [Suspect]
     Dosage: QD
     Dates: start: 20080101
  2. BIRTH CONTROL DRUG [Concomitant]
  3. METFORMIN HCL [Concomitant]

REACTIONS (3)
  - AGEUSIA [None]
  - ANOSMIA [None]
  - NASAL DISCOMFORT [None]
